FAERS Safety Report 13264291 (Version 2)
Quarter: 2017Q2

REPORT INFORMATION
  Report Type: Spontaneous
  Country: PT (occurrence: PT)
  Receive Date: 20170223
  Receipt Date: 20170405
  Transmission Date: 20170830
  Serious: Yes (Other)
  Sender: FDA-Public Use
  Company Number: PT-NOVOPROD-532537

PATIENT
  Age: 63 Year
  Sex: Male
  Weight: 88 kg

DRUGS (17)
  1. LYRICA [Concomitant]
     Active Substance: PREGABALIN
     Dosage: 450 MG, QD (300 MG IN THE MORNING AND 150 AT NIGHT)
  2. VIGANTOL                           /00318501/ [Concomitant]
     Active Substance: CHOLECALCIFEROL
     Dosage: 5 DROPS THREE TIMES A DAY
  3. VIGANTOL                           /00318501/ [Concomitant]
     Active Substance: CHOLECALCIFEROL
     Dosage: 5 DROPS ONCE DAILY
  4. INSULATARD NPH HUMAN [Suspect]
     Active Substance: INSULIN HUMAN
     Indication: TYPE 2 DIABETES MELLITUS
     Dosage: 90 IU, QD (50 IU IN THE MORNING AND 40 IU AT NIGHT)
     Route: 065
  5. TROMALYT [Concomitant]
     Active Substance: ASPIRIN
     Dosage: 150 MG, QD ONCE DAILY
  6. ACETYLSALICYLIC ACID [Concomitant]
     Active Substance: ASPIRIN
     Dosage: UNK 150 MG
  7. INSULATARD NPH HUMAN [Suspect]
     Active Substance: INSULIN HUMAN
     Dosage: 90 IU, QD (50 IU IN THE MORNING AND 40 IU AT NIGHT)
     Route: 065
  8. TRENTAL [Concomitant]
     Active Substance: PENTOXIFYLLINE
     Dosage: 400 MG, BID
  9. METFORMIN [Concomitant]
     Active Substance: METFORMIN HYDROCHLORIDE
     Dosage: 1000 MG, QD DAILY AT BREAKFAST
  10. ATORVASTATIN [Concomitant]
     Active Substance: ATORVASTATIN
     Dosage: 20 MG, QD
  11. LINAGLIPTIN [Concomitant]
     Active Substance: LINAGLIPTIN
     Dosage: 5 MG, QD
  12. PREGABALIN. [Concomitant]
     Active Substance: PREGABALIN
     Dosage: 30 MG, QD (200 MG- IN THE MORNING + 100 MG AT NIGHT)
  13. CARVEDILOL. [Concomitant]
     Active Substance: CARVEDILOL
     Dosage: 6.25 MG, BID
  14. COPALIA [Concomitant]
     Active Substance: AMLODIPINE BESYLATE\VALSARTAN
     Dosage: 1 TAB, QD (5 MG/160 MG ONCE DAILY)
  15. RILMENIDINE [Concomitant]
     Active Substance: RILMENIDINE
     Dosage: 1 MG, QD
  16. TRAJENTA [Concomitant]
     Active Substance: LINAGLIPTIN
     Dosage: 5 MG, QD (DAILY AT BREAKFAST)
  17. FUROSEMIDE. [Concomitant]
     Active Substance: FUROSEMIDE
     Dosage: 40 MG, QD (AT FASTING)

REACTIONS (5)
  - Dizziness [Recovered/Resolved]
  - Hypoglycaemia [Recovered/Resolved]
  - Loss of consciousness [Recovered/Resolved]
  - Road traffic accident [Unknown]
  - Product quality issue [Unknown]

NARRATIVE: CASE EVENT DATE: 20170211
